FAERS Safety Report 6147590-9 (Version None)
Quarter: 2009Q2

REPORT INFORMATION
  Report Type: 
  Country: None (occurrence: None)
  Receive Date: 20090408
  Receipt Date: 20090330
  Transmission Date: 20091009
  Serious: Yes (Other)
  Sender: FDA-Public Use
  Company Number: US-BAYER-200916832NA

PATIENT
  Age: 78 Year
  Sex: Male

DRUGS (12)
  1. LEVITRA [Suspect]
     Indication: ERECTILE DYSFUNCTION
     Dosage: TOTAL DAILY DOSE: 20 MG  UNIT DOSE: 20 MG
     Route: 048
     Dates: start: 20090301
  2. METOPROLOL TARTRATE [Concomitant]
  3. BENAZEPRIL HYDROCHLORIDE [Concomitant]
  4. AMLODIPINE [Concomitant]
  5. TRIAMTERENE [Concomitant]
  6. NEXIUM [Concomitant]
  7. FLOMAX [Concomitant]
  8. ASPIRIN [Concomitant]
  9. VITAMIN B-12 [Concomitant]
     Dates: start: 20090301
  10. FISH OIL [Concomitant]
  11. GLUCOSAMINE CHONDROITIN [Concomitant]
  12. SIMVASTATIN [Concomitant]

REACTIONS (2)
  - ABDOMINAL PAIN UPPER [None]
  - HAEMATOCHEZIA [None]
